FAERS Safety Report 8893595 (Version 1)
Quarter: 2012Q4

REPORT INFORMATION
  Report Type: 
  Country: US (occurrence: US)
  Receive Date: 20121107
  Receipt Date: 20121107
  Transmission Date: 20130627
  Serious: No
  Sender: FDA-Public Use
  Company Number: US-AMGEN-USASP2011060559

PATIENT
  Age: 46 Year

DRUGS (10)
  1. ENBREL [Suspect]
     Indication: PRODUCT USED FOR UNKNOWN INDICATION
     Dosage: 50 mg, qwk
     Route: 058
  2. ZOLOFT [Concomitant]
     Dosage: 25 mg, UNK
  3. AMITRIPTYLIN [Concomitant]
     Dosage: 25 mg, UNK
  4. LISINOPRIL [Concomitant]
     Dosage: 5 mg, UNK
  5. VITAMIN A /00056001/ [Concomitant]
  6. ASPIRIN [Concomitant]
     Dosage: 81 mg, UNK
  7. TOPROL [Concomitant]
     Dosage: 25 mg, UNK
  8. LEVITRA [Concomitant]
     Dosage: 10 mg, UNK
  9. HUMALOG [Concomitant]
  10. SYMLINPEN [Concomitant]
     Dosage: 1000 mug, UNK

REACTIONS (3)
  - Cough [Recovered/Resolved]
  - Nasopharyngitis [Recovered/Resolved]
  - Pyrexia [Recovered/Resolved]
